FAERS Safety Report 5016954-9 (Version None)
Quarter: 2006Q2

REPORT INFORMATION
  Report Type: 
  Country: None (occurrence: None)
  Receive Date: 20060526
  Receipt Date: 20060512
  Transmission Date: 20061013
  Serious: Yes (Hospitalization, Other)
  Sender: FDA-Public Use
  Company Number: US200605003012

PATIENT
  Sex: Female

DRUGS (6)
  1. ZYPREXA [Suspect]
     Indication: DEPRESSION
     Dosage: 10 MG
     Dates: start: 19960101
  2. ZOLOFT [Concomitant]
  3. DETROL [Concomitant]
  4. EZETIMIBE (EZETIMIBE) [Concomitant]
  5. SINVASTATIN (SIMVASTATIN) [Concomitant]
  6. KLONOPIN [Concomitant]

REACTIONS (10)
  - ABASIA [None]
  - ACTIVITIES OF DAILY LIVING IMPAIRED [None]
  - ANXIETY [None]
  - BLOOD SODIUM DECREASED [None]
  - DEPRESSION [None]
  - GENERAL PHYSICAL HEALTH DETERIORATION [None]
  - MENTAL DISORDER [None]
  - MUSCULAR WEAKNESS [None]
  - PARKINSONISM [None]
  - URINARY INCONTINENCE [None]
